FAERS Safety Report 5144152-7 (Version None)
Quarter: 2006Q4

REPORT INFORMATION
  Report Type: 
  Country: None (occurrence: None)
  Receive Date: 20061106
  Receipt Date: 20041228
  Transmission Date: 20070319
  Serious: Yes (Death, Hospitalization, Disabling)
  Sender: FDA-Public Use
  Company Number: JP-BRISTOL-MYERS SQUIBB COMPANY-12807392

PATIENT
  Age: 44 Year
  Sex: Male

DRUGS (8)
  1. PARAPLATIN [Suspect]
     Indication: LYMPHOMA
     Route: 041
     Dates: start: 20041209, end: 20041212
  2. VEPESID [Suspect]
     Indication: LYMPHOMA
     Route: 041
     Dates: start: 20041210, end: 20041212
  3. ENDOXAN [Suspect]
     Indication: LYMPHOMA
     Route: 041
     Dates: start: 20041213, end: 20041214
  4. CYMERIN [Suspect]
     Indication: LYMPHOMA
     Dosage: 1ST DOSE - 08DEC04
     Route: 041
     Dates: start: 20041213, end: 20041213
  5. MAXIPIME [Concomitant]
     Route: 041
     Dates: start: 20041210, end: 20041216
  6. RITUXAN [Concomitant]
     Route: 041
     Dates: start: 20041207, end: 20041216
  7. PRODIF [Concomitant]
     Route: 041
     Dates: start: 20041213, end: 20041214
  8. HEMATOPOETIC PROGENITOR CELLS HUMAN [Concomitant]

REACTIONS (5)
  - CARDIAC TAMPONADE [None]
  - HAEMODIALYSIS [None]
  - MALIGNANT NEOPLASM PROGRESSION [None]
  - RENAL FAILURE [None]
  - SHOCK [None]
